FAERS Safety Report 7984711-7 (Version None)
Quarter: 2011Q4

REPORT INFORMATION
  Report Type: 
  Country: None (occurrence: None)
  Receive Date: 20111216
  Receipt Date: 20111205
  Transmission Date: 20120403
  Serious: Yes (Life-Threatening)
  Sender: FDA-Public Use
  Company Number: SI-SANOFI-AVENTIS-2011SA080507

PATIENT
  Age: 79 Year
  Sex: Male

DRUGS (7)
  1. SINTROM [Concomitant]
  2. CORYOL [Concomitant]
  3. ALDACTONE [Concomitant]
  4. PERINDOPRIL [Concomitant]
  5. CRESTOR [Concomitant]
  6. MULTAQ [Suspect]
     Route: 048
     Dates: start: 20110620, end: 20110730
  7. LASIX [Concomitant]

REACTIONS (5)
  - BRADYCARDIA [None]
  - RESPIRATORY RATE DECREASED [None]
  - HYPERKALAEMIA [None]
  - ATRIOVENTRICULAR BLOCK COMPLETE [None]
  - BLOOD CREATININE INCREASED [None]
